FAERS Safety Report 25246483 (Version 1)
Quarter: 2025Q2

REPORT INFORMATION
  Report Type: Spontaneous
  Country: FR (occurrence: FR)
  Receive Date: 20250428
  Receipt Date: 20250428
  Transmission Date: 20250716
  Serious: Yes (Death, Hospitalization, Other)
  Sender: MERCK SHARP & DOHME LLC
  Company Number: None

PATIENT
  Age: 67 Year
  Sex: Female
  Weight: 70 kg

DRUGS (4)
  1. KEYTRUDA [Suspect]
     Active Substance: PEMBROLIZUMAB
     Indication: Adenocarcinoma of the cervix
     Dosage: DOSE DESCRIPTION : 1 TREATMENT IN TOTAL?DAILY DOSE : 1 DOSAGE FORM?REGIMEN DOSE : 1  DOSAGE FORM
     Route: 042
     Dates: start: 20240209, end: 20240209
  2. PACLITAXEL [Suspect]
     Active Substance: PACLITAXEL
     Indication: Adenocarcinoma of the cervix
     Route: 042
     Dates: start: 20240209, end: 20240209
  3. BEVACIZUMAB [Suspect]
     Active Substance: BEVACIZUMAB
     Indication: Adenocarcinoma of the cervix
     Dosage: DOSE DESCRIPTION : 1 TREATMENT IN TOTAL?DAILY DOSE : 1 DOSAGE FORM?REGIMEN DOSE : 1  DOSAGE FORM
     Route: 042
     Dates: start: 20240209, end: 20240209
  4. CARBOPLATIN [Suspect]
     Active Substance: CARBOPLATIN
     Indication: Adenocarcinoma of the cervix
     Route: 042
     Dates: start: 20240209, end: 20240209

REACTIONS (4)
  - Myocarditis [Fatal]
  - Thrombocytopenia [Recovered/Resolved]
  - Myositis [Fatal]
  - Haemolytic anaemia [Recovering/Resolving]

NARRATIVE: CASE EVENT DATE: 20240302
